FAERS Safety Report 23811673 (Version 1)
Quarter: 2024Q2

REPORT INFORMATION
  Report Type: Spontaneous
  Country: US (occurrence: US)
  Receive Date: 20240503
  Receipt Date: 20240503
  Transmission Date: 20240715
  Serious: No
  Sender: FDA-Public Use
  Company Number: US-PADAGIS-2024PAD00668

PATIENT

DRUGS (2)
  1. BETAMETHASONE DIPROPIONATE USP, 0.05% [Suspect]
     Active Substance: BETAMETHASONE DIPROPIONATE
     Indication: Product used for unknown indication
     Dosage: UNK
     Route: 065
  2. BROMFENAC;MOXIFLOXACIN;PREDNISOLONE [Concomitant]
     Indication: Product used for unknown indication
     Dosage: A MONTH AND A HALF
     Route: 065
     Dates: start: 2024

REACTIONS (2)
  - Skin discolouration [Unknown]
  - Livedo reticularis [Unknown]
